APPROVED DRUG PRODUCT: TOTACILLIN-N
Active Ingredient: AMPICILLIN SODIUM
Strength: EQ 2GM BASE/VIAL
Dosage Form/Route: INJECTABLE;INJECTION
Application: A062727 | Product #002
Applicant: GLAXOSMITHKLINE
Approved: Dec 19, 1986 | RLD: No | RS: No | Type: DISCN